FAERS Safety Report 9664857 (Version 2)
Quarter: 2013Q4

REPORT INFORMATION
  Report Type: Spontaneous
  Country: NL (occurrence: NL)
  Receive Date: 20131101
  Receipt Date: 20131118
  Transmission Date: 20140711
  Serious: Yes (Hospitalization)
  Sender: FDA-Public Use
  Company Number: NL-ABBVIE-13P-114-1161751-00

PATIENT
  Age: 44 Year
  Sex: Male

DRUGS (2)
  1. HUMIRA [Suspect]
     Indication: CROHN^S DISEASE
     Route: 058
  2. IRON [Concomitant]
     Indication: PRODUCT USED FOR UNKNOWN INDICATION

REACTIONS (7)
  - Ulcer [Recovered/Resolved]
  - Dizziness [Unknown]
  - Faeces discoloured [Unknown]
  - Iron deficiency anaemia [Unknown]
  - Sacroiliitis [Unknown]
  - Haemorrhage [Unknown]
  - Ischaemia [Unknown]
